FAERS Safety Report 4926425-3 (Version None)
Quarter: 2006Q1

REPORT INFORMATION
  Report Type: 
  Country: None (occurrence: None)
  Receive Date: 20060228
  Receipt Date: 20051117
  Transmission Date: 20060701
  Serious: Yes (Hospitalization, Other)
  Sender: FDA-Public Use
  Company Number: US-GLAXOSMITHKLINE-A0582780A

PATIENT
  Age: 41 Year
  Sex: Female
  Weight: 58.8 kg

DRUGS (3)
  1. LAMICTAL [Suspect]
     Indication: BIPOLAR DISORDER
     Route: 048
     Dates: start: 20040101, end: 20051117
  2. ADDERALL 10 [Concomitant]
     Dosage: 30MG TWICE PER DAY
     Route: 048
  3. AMBIEN [Concomitant]
     Dosage: 5MG AS REQUIRED
     Route: 048

REACTIONS (4)
  - ORAL MUCOSAL BLISTERING [None]
  - PHARYNGEAL OEDEMA [None]
  - PRURITUS [None]
  - RASH MACULO-PAPULAR [None]
